FAERS Safety Report 6993068-X (Version None)
Quarter: 2010Q3

REPORT INFORMATION
  Report Type: 
  Country: None (occurrence: None)
  Receive Date: 20100917
  Receipt Date: 20100301
  Transmission Date: 20110219
  Serious: No
  Sender: FDA-Public Use
  Company Number: US-ASTRAZENECA-2010SE08900

PATIENT
  Age: 659 Month
  Sex: Male

DRUGS (10)
  1. SEROQUEL [Suspect]
     Indication: ANXIETY
     Route: 048
     Dates: start: 20080101
  2. SEROQUEL [Suspect]
     Indication: DEPRESSION
     Route: 048
     Dates: start: 20080101
  3. SEROQUEL [Suspect]
     Dosage: 50MG EVERY 5 DAYS
     Route: 048
  4. SEROQUEL [Suspect]
     Dosage: 50MG EVERY 5 DAYS
     Route: 048
  5. SEROQUEL [Suspect]
     Dosage: 50MG FOR 6-7 DAYS
     Route: 048
  6. SEROQUEL [Suspect]
     Dosage: 50MG FOR 6-7 DAYS
     Route: 048
  7. SEROQUEL [Suspect]
     Dosage: GOT DOWN TO 100MG
     Route: 048
  8. SEROQUEL [Suspect]
     Dosage: GOT DOWN TO 100MG
     Route: 048
  9. LUVOX [Concomitant]
  10. XANAX [Concomitant]

REACTIONS (4)
  - INSOMNIA [None]
  - INTENTIONAL DRUG MISUSE [None]
  - NERVOUSNESS [None]
  - TREMOR [None]
